FAERS Safety Report 7808651-9 (Version None)
Quarter: 2011Q4

REPORT INFORMATION
  Report Type: 
  Country: None (occurrence: None)
  Receive Date: 20111012
  Receipt Date: 20111005
  Transmission Date: 20120403
  Serious: Yes (Death)
  Sender: FDA-Public Use
  Company Number: US-AMGEN-USASP2011048214

PATIENT
  Age: 52 Year
  Sex: Male
  Weight: 89.342 kg

DRUGS (1)
  1. PROCRIT [Suspect]
     Indication: RENAL FAILURE CHRONIC
     Dosage: 10000 IU, Q2WK
     Dates: start: 20110701, end: 20110807

REACTIONS (1)
  - DEATH [None]
